FAERS Safety Report 6187416-0 (Version None)
Quarter: 2009Q2

REPORT INFORMATION
  Report Type: 
  Country: None (occurrence: None)
  Receive Date: 20090512
  Receipt Date: 20060505
  Transmission Date: 20091009
  Serious: Yes (Other)
  Sender: FDA-Public Use
  Company Number: GB-TEVA-193941ISR

PATIENT
  Age: 37 Year
  Sex: Male

DRUGS (1)
  1. AMITRIPTLINE HYDROCHLORIDE TAB [Suspect]
     Indication: SLEEP DISORDER
     Route: 048

REACTIONS (1)
  - HYPOGLYCAEMIA [None]
